FAERS Safety Report 9764504 (Version 4)
Quarter: 2016Q1

REPORT INFORMATION
  Report Type: Spontaneous
  Country: IT (occurrence: IT)
  Receive Date: 20131217
  Receipt Date: 20160208
  Transmission Date: 20160526
  Serious: Yes (Death, Disabling, Other)
  Sender: FDA-Public Use
  Company Number: IT-BRISTOL-MYERS SQUIBB COMPANY-19891639

PATIENT
  Age: 50 Year
  Sex: Male

DRUGS (3)
  1. ALMARYTM [Concomitant]
     Active Substance: FLECAINIDE ACETATE
     Indication: PRODUCT USED FOR UNKNOWN INDICATION
     Dosage: ALMARYTM 100MG TABS,1DF: 1UNIT
     Route: 065
  2. COUMADIN [Suspect]
     Active Substance: WARFARIN SODIUM
     Indication: CARDIAC ABLATION
     Dosage: 2500 ?G, QD
     Route: 048
     Dates: start: 20130909, end: 20131025
  3. CORDARONE [Concomitant]
     Active Substance: AMIODARONE HYDROCHLORIDE
     Indication: PRODUCT USED FOR UNKNOWN INDICATION
     Dosage: CORDARONE 200MG TABS,1DF: 2UNITS
     Route: 048

REACTIONS (3)
  - Off label use [Unknown]
  - Deafness [Not Recovered/Not Resolved]
  - Ear haemorrhage [Fatal]

NARRATIVE: CASE EVENT DATE: 20131025
